FAERS Safety Report 6078714-X (Version None)
Quarter: 2009Q1

REPORT INFORMATION
  Report Type: 
  Country: None (occurrence: None)
  Receive Date: 20090216
  Receipt Date: 20090205
  Transmission Date: 20090719
  Serious: Yes (Death, Hospitalization)
  Sender: FDA-Public Use
  Company Number: AT-BAYER-200912313GPV

PATIENT
  Age: 70 Year
  Sex: Male

DRUGS (2)
  1. MABCAMPATH [Suspect]
     Indication: CHRONIC LYMPHOCYTIC LEUKAEMIA
     Dates: start: 20040705, end: 20040730
  2. FLUDARABINE PHOSPHATE [Suspect]

REACTIONS (1)
  - ACUTE MYELOID LEUKAEMIA [None]
